FAERS Safety Report 14784014 (Version 1)
Quarter: 2018Q2

REPORT INFORMATION
  Report Type: Report from Study
  Country: US (occurrence: US)
  Receive Date: 20180420
  Receipt Date: 20180420
  Transmission Date: 20180711
  Serious: Yes (Hospitalization)
  Sender: FDA-Public Use
  Company Number: US-BAYER-2018-072811

PATIENT
  Age: 36 Year
  Sex: Female

DRUGS (1)
  1. NEXAVAR [Suspect]
     Active Substance: SORAFENIB
     Indication: HEPATIC CANCER
     Dosage: 200 MG, QD
     Route: 048

REACTIONS (4)
  - Intestinal obstruction [Recovered/Resolved]
  - Off label use [None]
  - Palmar-plantar erythrodysaesthesia syndrome [None]
  - Arthralgia [None]

NARRATIVE: CASE EVENT DATE: 201803
